FAERS Safety Report 7630320-9 (Version None)
Quarter: 2011Q3

REPORT INFORMATION
  Report Type: 
  Country: None (occurrence: None)
  Receive Date: 20110722
  Receipt Date: 20110714
  Transmission Date: 20111222
  Serious: No
  Sender: FDA-Public Use
  Company Number: US-BAYER-2011-061731

PATIENT
  Age: 50 Year
  Sex: Female
  Weight: 70.295 kg

DRUGS (3)
  1. BETASERON [Suspect]
     Dosage: 0.25 MG, QOD
     Route: 058
  2. AMBIEN [Concomitant]
     Dosage: 10 MG, UNK
  3. BACLOFEN [Concomitant]
     Dosage: 10 MG, QD

REACTIONS (2)
  - LIMB DISCOMFORT [None]
  - FATIGUE [None]
